FAERS Safety Report 19509781 (Version 1)
Quarter: 2021Q3

REPORT INFORMATION
  Report Type: Report from Study
  Country: IE (occurrence: IE)
  Receive Date: 20210708
  Receipt Date: 20210708
  Transmission Date: 20211014
  Serious: Yes (Hospitalization)
  Sender: FDA-Public Use
  Company Number: IE-PFIZER INC-2021800552

PATIENT
  Weight: 33.1 kg

DRUGS (27)
  1. KIN [ALOE VERA;CETYLPYRIDINIUM CHLORIDE;DEXPANTHENOL;SODIUM FLUORIDE] [Concomitant]
     Indication: GINGIVITIS
     Dosage: 5 ML, EVERY 12 HOURS
     Dates: start: 20210611, end: 20210623
  2. ESOMEPRAZOLE. [Concomitant]
     Active Substance: ESOMEPRAZOLE MAGNESIUM
     Indication: GASTROOESOPHAGEAL REFLUX DISEASE
     Dosage: 20 MG, EVERY 24 HOURS
     Dates: start: 20210615, end: 20210620
  3. PARACETAMOL [Concomitant]
     Active Substance: ACETAMINOPHEN
     Indication: PAIN
     Dosage: 510 MG, EVERY OTHER DAY
     Dates: start: 20210611, end: 20210617
  4. POSACONAZOLE [Concomitant]
     Active Substance: POSACONAZOLE
     Indication: ANTIFUNGAL PROPHYLAXIS
     Dosage: 260 MG, EVERY 12 HOURS
     Dates: start: 20210621, end: 20210623
  5. OXYNORM [Concomitant]
     Active Substance: OXYCODONE HYDROCHLORIDE
     Indication: PAIN
     Dosage: 5 MG, EVERY 4 HOURS
     Dates: start: 20210615, end: 20210617
  6. NYSTATIN. [Concomitant]
     Active Substance: NYSTATIN
     Indication: ANTIFUNGAL PROPHYLAXIS
     Dosage: 1.0 ML, EVERY 6 HOURS
     Dates: start: 20210615, end: 20210623
  7. AMILORIDE [Concomitant]
     Active Substance: AMILORIDE
     Dosage: 5 MG, EVERY 12 HOURS
     Dates: start: 20210618, end: 20210620
  8. OXYNORM [Concomitant]
     Active Substance: OXYCODONE HYDROCHLORIDE
     Dosage: 5 MG, EVERY 8 HOURS
     Dates: start: 20210620, end: 20210623
  9. LEVOMEPROMAZINE [Concomitant]
     Active Substance: LEVOMEPROMAZINE
     Indication: PSYCHOTIC DISORDER
     Dosage: 3 MG, EVERY 12 HOURS
     Dates: start: 20210617, end: 20210623
  10. BUSCOPAN [Concomitant]
     Active Substance: BUTYLSCOPOLAMINE BROMIDE
     Indication: ANTICHOLINERGIC SYNDROME
     Dosage: 10 MG, EVERY 8 HOURS
     Dates: start: 20210621, end: 20210621
  11. HYDROCORTISONE. [Concomitant]
     Active Substance: HYDROCORTISONE
     Indication: SECONDARY ADRENOCORTICAL INSUFFICIENCY
     Dosage: 100 MG, OTHER (ON 11TH AND 14 TH)
     Dates: start: 20210611, end: 20210614
  12. OMEPRAZOLE. [Concomitant]
     Active Substance: OMEPRAZOLE
     Indication: GASTROOESOPHAGEAL REFLUX DISEASE
     Dosage: 20 MG, EVERY 24 HOURS
     Dates: start: 20210614, end: 20210614
  13. GEMTUZUMAB OZOGAMICIN [Suspect]
     Active Substance: GEMTUZUMAB OZOGAMICIN
     Indication: ACUTE MYELOID LEUKAEMIA
     Dosage: 3.5 MG, OTHER
     Route: 042
     Dates: start: 20210608, end: 20210614
  14. AMBISOME [Concomitant]
     Active Substance: AMPHOTERICIN B
     Indication: ANTIFUNGAL PROPHYLAXIS
     Dosage: 34 MG, EVERY 24 HOURS
     Dates: start: 20210611, end: 20210620
  15. AMILORIDE [Concomitant]
     Active Substance: AMILORIDE
     Indication: HYPERTENSION
     Dosage: 5 MG, EVERY 12 HOURS
     Dates: start: 20210611, end: 20210618
  16. CYCLIZINE [Concomitant]
     Active Substance: CYCLIZINE
     Indication: PROPHYLAXIS OF NAUSEA AND VOMITING
     Dosage: 25 MG, EVERY 8 HOURS
     Dates: start: 20210611, end: 20210611
  17. TAZOCIN [Concomitant]
     Active Substance: PIPERACILLIN SODIUM\TAZOBACTAM SODIUM
     Indication: ANTIBIOTIC THERAPY
     Dosage: 3.0 G, EVERY 6 HOURS
     Dates: start: 20210611, end: 20210621
  18. ONDANSETRON [Concomitant]
     Active Substance: ONDANSETRON
     Indication: ANTIEMETIC SUPPORTIVE CARE
     Dosage: 6.0 MG, EVERY 8 HOURS
     Dates: start: 20210611, end: 20210623
  19. COTRIMOXAZOLE [Concomitant]
     Active Substance: SULFAMETHOXAZOLE\TRIMETHOPRIM
     Indication: ANTIBIOTIC THERAPY
     Dosage: 480 MG, EVERY 12 HOURS
     Dates: start: 20210612, end: 20210621
  20. PENTAMYCIN [Concomitant]
     Indication: ANTIBIOTIC THERAPY
     Dosage: 232 MG, EVERY 24 HOURS
     Dates: start: 20210616, end: 20210617
  21. PENTAMYCIN [Concomitant]
     Indication: ANTIFUNGAL PROPHYLAXIS
  22. MITOXANTRONE HCL [Suspect]
     Active Substance: MITOXANTRONE HYDROCHLORIDE
     Indication: ACUTE MYELOID LEUKAEMIA
     Dosage: 14 MG/M2, 1X/DAY
     Route: 042
     Dates: start: 20210605, end: 20210608
  23. KIN [ALOE VERA;CETYLPYRIDINIUM CHLORIDE;DEXPANTHENOL;SODIUM FLUORIDE] [Concomitant]
     Indication: PERIODONTAL DISEASE
  24. OMEPRAZOLE. [Concomitant]
     Active Substance: OMEPRAZOLE
     Dosage: 20 MG, EVERY 24 HOURS
     Dates: start: 20210621, end: 20210623
  25. OXYNORM [Concomitant]
     Active Substance: OXYCODONE HYDROCHLORIDE
     Dosage: 5 MG, EVERY 6 HOURS
     Dates: start: 20210617, end: 20210620
  26. HEPARIN SODIUM. [Concomitant]
     Active Substance: HEPARIN SODIUM
     Indication: ANTICOAGULANT THERAPY
     Dosage: 2.5 ML, EVERY 6 HOURS
     Dates: start: 20210613, end: 20210623
  27. CHLORPHENAMINE [Concomitant]
     Active Substance: CHLORPHENIRAMINE MALEATE
     Indication: ANTIALLERGIC THERAPY
     Dosage: 5 MG, OTHER (ON 14TH, 15TH AND 23RD)
     Dates: start: 20210614, end: 20210623

REACTIONS (1)
  - Febrile neutropenia [Not Recovered/Not Resolved]

NARRATIVE: CASE EVENT DATE: 20210625
